FAERS Safety Report 6356197-X (Version None)
Quarter: 2009Q3

REPORT INFORMATION
  Report Type: 
  Country: None (occurrence: None)
  Receive Date: 20090915
  Receipt Date: 20090909
  Transmission Date: 20100115
  Serious: Yes (Other)
  Sender: FDA-Public Use
  Company Number: US-BAYER-200932473NA

PATIENT
  Sex: Female

DRUGS (1)
  1. YAZ [Suspect]
     Indication: CONTRACEPTION
     Dates: start: 20070801, end: 20070901

REACTIONS (6)
  - ATRIAL THROMBOSIS [None]
  - COUGH [None]
  - FATIGUE [None]
  - PLEURITIC PAIN [None]
  - PULMONARY EMBOLISM [None]
  - PYREXIA [None]
